FAERS Safety Report 19874105 (Version 2)
Quarter: 2021Q4

REPORT INFORMATION
  Report Type: Other
  Country: None (occurrence: FR)
  Receive Date: 20210923
  Receipt Date: 20211104
  Transmission Date: 20220303
  Serious: Yes (Hospitalization)
  Sender: FDA-Public Use
  Company Number: FR-KNIGHT THERAPEUTICS (USA) INC.-2118723

PATIENT
  Age: 60 Year
  Sex: Male

DRUGS (2)
  1. IMPAVIDO [Suspect]
     Active Substance: MILTEFOSINE
     Indication: Visceral leishmaniasis
     Route: 048
     Dates: start: 20210605, end: 20210628
  2. AMPHOTERICIN B [Concomitant]
     Active Substance: AMPHOTERICIN B

REACTIONS (1)
  - Tubulointerstitial nephritis [Recovering/Resolving]
